FAERS Safety Report 9854102 (Version 2)
Quarter: 2014Q1

REPORT INFORMATION
  Report Type: Spontaneous
  Country: BR (occurrence: BR)
  Receive Date: 20140129
  Receipt Date: 20140208
  Transmission Date: 20141002
  Serious: Yes (Hospitalization)
  Sender: FDA-Public Use
  Company Number: BR-UCBSA-110658

PATIENT
  Age: 53 Year
  Sex: Male
  Weight: 60 kg

DRUGS (5)
  1. CIMZIA [Suspect]
     Dosage: 200MG/ML EVERY 2 WEEKS
     Dates: start: 20131223, end: 20140106
  2. ACETAMINOPHEN [Concomitant]
     Indication: ARTHRITIS
  3. METFORMIN [Concomitant]
     Indication: DIABETES MELLITUS
  4. METHOTREXATE [Concomitant]
     Indication: ARTHRITIS
  5. DICLOFENAC [Concomitant]
     Indication: ARTHRITIS

REACTIONS (3)
  - Lung infection [Recovered/Resolved]
  - Influenza [Recovered/Resolved]
  - Bronchitis [Unknown]
